FAERS Safety Report 5604230-2 (Version None)
Quarter: 2008Q1

REPORT INFORMATION
  Report Type: 
  Country: None (occurrence: None)
  Receive Date: 20080123
  Receipt Date: 20080114
  Transmission Date: 20080703
  Serious: Yes (Death)
  Sender: FDA-Public Use
  Company Number: B0503108A

PATIENT
  Age: 41 Year
  Sex: Male

DRUGS (4)
  1. PAROXETINE (FORMULATION UNKNOWN) (GENERIC) (PAROXETINE HYDROCHLORIDE) [Suspect]
     Dosage: ORAL
     Route: 048
  2. METHADONE HYDROCHLORIDE [Suspect]
     Dosage: ORAL
     Route: 048
  3. ALPRAZOLAM [Suspect]
     Dosage: ORAL
     Route: 048
  4. AMITRIPTLINE HCL [Suspect]
     Dosage: ORAL
     Route: 048

REACTIONS (3)
  - CARDIO-RESPIRATORY ARREST [None]
  - DRUG LEVEL INCREASED [None]
  - INTENTIONAL DRUG MISUSE [None]
